FAERS Safety Report 12390148 (Version 2)
Quarter: 2020Q3

REPORT INFORMATION
  Report Type: Report from Study
  Country: JP (occurrence: JP)
  Receive Date: 20160520
  Receipt Date: 20160531
  Transmission Date: 20201104
  Serious: Yes (Hospitalization)
  Sender: FDA-Public Use
  Company Number: JP-JNJFOC-20160512455

PATIENT
  Age: 69 Year
  Sex: Female
  Weight: 62 kg

DRUGS (9)
  1. URSODEOXYCHOLIC ACID [Concomitant]
     Active Substance: URSODIOL
     Indication: ASPARTATE AMINOTRANSFERASE INCREASED
     Route: 048
     Dates: start: 20160419
  2. TRABECTEDIN [Suspect]
     Active Substance: TRABECTEDIN
     Indication: MALIGNANT PERITONEAL NEOPLASM
     Dosage: OVER 3 HOURS
     Route: 042
     Dates: start: 20160404
  3. MONOAMMONIUM GLYCYRRHIZINATE [Suspect]
     Active Substance: AMMONIUM GLYCYRRHIZATE
     Indication: ALANINE AMINOTRANSFERASE INCREASED
     Route: 048
     Dates: start: 20160419, end: 20160510
  4. URSODEOXYCHOLIC ACID [Concomitant]
     Active Substance: URSODIOL
     Indication: ALANINE AMINOTRANSFERASE INCREASED
     Route: 048
     Dates: start: 20160419
  5. DOXIL [Suspect]
     Active Substance: DOXORUBICIN HYDROCHLORIDE
     Route: 042
  6. DOXIL [Suspect]
     Active Substance: DOXORUBICIN HYDROCHLORIDE
     Indication: MALIGNANT PERITONEAL NEOPLASM
     Dosage: OVER 90 MIN
     Route: 042
     Dates: start: 20160404
  7. MONOAMMONIUM GLYCYRRHIZINATE [Suspect]
     Active Substance: AMMONIUM GLYCYRRHIZATE
     Indication: ASPARTATE AMINOTRANSFERASE INCREASED
     Route: 048
     Dates: start: 20160419, end: 20160510
  8. TRABECTEDIN [Suspect]
     Active Substance: TRABECTEDIN
     Route: 042
  9. WARFARIN POTASSIUM [Concomitant]
     Active Substance: WARFARIN POTASSIUM
     Indication: DEEP VEIN THROMBOSIS
     Route: 048
     Dates: start: 20160415

REACTIONS (11)
  - Alanine aminotransferase increased [None]
  - Hypertension [None]
  - Hypokalaemia [None]
  - Aspartate aminotransferase increased [None]
  - Oedema peripheral [None]
  - Hypoxia [None]
  - Pseudoaldosteronism [Recovering/Resolving]
  - Pleural effusion [None]
  - Pulmonary oedema [None]
  - Weight increased [None]
  - Pericardial effusion [None]

NARRATIVE: CASE EVENT DATE: 20160510
